FAERS Safety Report 5003092-4 (Version None)
Quarter: 2006Q2

REPORT INFORMATION
  Report Type: 
  Country: None (occurrence: None)
  Receive Date: 20060516
  Receipt Date: 20050414
  Transmission Date: 20061013
  Serious: Yes (Hospitalization, Disabling, Other)
  Sender: FDA-Public Use
  Company Number: US-MERCK-0504USA02735

PATIENT
  Age: 51 Year
  Sex: Female
  Weight: 136 kg

DRUGS (11)
  1. ATROVENT [Concomitant]
     Route: 065
  2. DEMADEX [Concomitant]
     Route: 065
  3. VIOXX [Suspect]
     Indication: OSTEOARTHRITIS
     Route: 048
     Dates: start: 19990101, end: 20030101
  4. EFFEXOR [Concomitant]
     Route: 065
  5. ATENOLOL [Concomitant]
     Route: 065
  6. PROTONIX [Concomitant]
     Route: 065
  7. HYZAAR [Concomitant]
     Route: 065
  8. ZOCOR [Concomitant]
     Route: 065
  9. KLOR-CON [Concomitant]
     Route: 065
  10. ALLOPURINOL [Concomitant]
     Route: 065
  11. FLOVENT [Concomitant]
     Route: 065

REACTIONS (24)
  - ARTERIAL OCCLUSIVE DISEASE [None]
  - CEREBROVASCULAR ACCIDENT [None]
  - CHEST PAIN [None]
  - CORONARY ARTERY DISEASE [None]
  - COUGH [None]
  - DEPRESSION [None]
  - DYSFUNCTIONAL UTERINE BLEEDING [None]
  - DYSPNOEA [None]
  - DYSURIA [None]
  - ENTEROCELE [None]
  - GASTRIC BYPASS [None]
  - HEMIPARESIS [None]
  - HYPERTROPHY [None]
  - INCISION SITE INFECTION [None]
  - LEUKOCYTOSIS [None]
  - MYOCARDIAL INFARCTION [None]
  - MYOCARDIAL ISCHAEMIA [None]
  - OEDEMA PERIPHERAL [None]
  - SKIN INFECTION [None]
  - UTERINE HAEMORRHAGE [None]
  - UTERINE PROLAPSE [None]
  - VAGINAL PROLAPSE [None]
  - VENTRICULAR TACHYCARDIA [None]
  - WEIGHT INCREASED [None]
